FAERS Safety Report 12103914 (Version 3)
Quarter: 2016Q1

REPORT INFORMATION
  Report Type: Spontaneous
  Country: JP (occurrence: JP)
  Receive Date: 20160223
  Receipt Date: 20160311
  Transmission Date: 20160526
  Serious: Yes (Life-Threatening, Disabling, Other)
  Sender: FDA-Public Use
  Company Number: JP-ABBVIE-16K-087-1534987-00

PATIENT
  Age: 56 Year
  Sex: Female

DRUGS (14)
  1. METOLATE [Suspect]
     Active Substance: METHOTREXATE
     Indication: RHEUMATOID ARTHRITIS
     Route: 048
     Dates: start: 20120428, end: 20120601
  2. PREDNISOLONE. [Concomitant]
     Active Substance: PREDNISOLONE
     Indication: RHEUMATOID ARTHRITIS
     Route: 048
     Dates: start: 20120724, end: 20121127
  3. METOLATE [Suspect]
     Active Substance: METHOTREXATE
     Route: 048
     Dates: start: 20130709, end: 20131008
  4. PREDNISOLONE. [Concomitant]
     Active Substance: PREDNISOLONE
     Route: 048
     Dates: start: 20121127, end: 20131203
  5. RHEUMATREX [Concomitant]
     Active Substance: METHOTREXATE SODIUM
     Indication: RHEUMATOID ARTHRITIS
     Route: 048
     Dates: start: 20151106, end: 20151201
  6. HUMIRA [Suspect]
     Active Substance: ADALIMUMAB
     Route: 058
     Dates: start: 20131008, end: 20151006
  7. TACROLIMUS. [Concomitant]
     Active Substance: TACROLIMUS
     Route: 048
     Dates: start: 20130416, end: 20151130
  8. PREDNISOLONE. [Concomitant]
     Active Substance: PREDNISOLONE
     Route: 048
     Dates: start: 20131203, end: 20151130
  9. PREDNISOLONE. [Concomitant]
     Active Substance: PREDNISOLONE
     Route: 048
     Dates: start: 20151201, end: 20151215
  10. TACROLIMUS. [Concomitant]
     Active Substance: TACROLIMUS
     Route: 048
     Dates: start: 20121030, end: 20130416
  11. HUMIRA [Suspect]
     Active Substance: ADALIMUMAB
     Route: 058
     Dates: start: 20151102, end: 20151231
  12. METOLATE [Suspect]
     Active Substance: METHOTREXATE
     Route: 048
     Dates: start: 20120601, end: 20130709
  13. HUMIRA [Suspect]
     Active Substance: ADALIMUMAB
     Indication: RHEUMATOID ARTHRITIS
     Route: 058
     Dates: start: 20120807, end: 20130903
  14. TACROLIMUS. [Concomitant]
     Active Substance: TACROLIMUS
     Indication: RHEUMATOID ARTHRITIS
     Route: 048
     Dates: start: 20120611, end: 20121030

REACTIONS (7)
  - Spinal pain [Unknown]
  - Arthralgia [Not Recovered/Not Resolved]
  - Hilar lymphadenopathy [Unknown]
  - Hepatic function abnormal [Recovering/Resolving]
  - Lung cancer metastatic [Not Recovered/Not Resolved]
  - Interstitial lung disease [Unknown]
  - Pathological fracture [Not Recovered/Not Resolved]

NARRATIVE: CASE EVENT DATE: 201208
